FAERS Safety Report 18234342 (Version 1)
Quarter: 2020Q3

REPORT INFORMATION
  Report Type: Spontaneous
  Country: DE (occurrence: DE)
  Receive Date: 20200904
  Receipt Date: 20200904
  Transmission Date: 20201103
  Serious: Yes (Other)
  Sender: FDA-Public Use
  Company Number: DE-ALLERGAN-2033348US

PATIENT
  Sex: Male
  Weight: 3.93 kg

DRUGS (7)
  1. ESCITALOPRAM OXALATE ? BP [Suspect]
     Active Substance: ESCITALOPRAM OXALATE
     Indication: EXPOSURE DURING PREGNANCY
     Dosage: 20 [MG/D (BIS 10)] 0?39.6 GESTATIONAL WEEK
     Route: 064
     Dates: start: 20190518, end: 20200221
  2. BUPROPION. [Concomitant]
     Active Substance: BUPROPION
     Indication: EXPOSURE DURING PREGNANCY
     Dosage: THERAPY WAS PROBABLY ONGOING (PATERNAL)
     Route: 065
     Dates: start: 20190518, end: 20190805
  3. PARACETAMOL [Concomitant]
     Active Substance: ACETAMINOPHEN
     Indication: EXPOSURE DURING PREGNANCY
     Dosage: 500 [MG/D PRN] TAKEN ON APPROX 9 DAYS DURING ENTIRE PREGNANCY, 0?39.6 GESTATIONAL WEEK
     Route: 064
     Dates: start: 20190518, end: 20200221
  4. L?THYROXIN [Concomitant]
     Active Substance: LEVOTHYROXINE SODIUM
     Indication: EXPOSURE DURING PREGNANCY
     Dosage: 50 [?G/D], 0?37 GESTATIONAL WEEK
     Route: 064
  5. INFLUVAC TETRA [Concomitant]
     Active Substance: INFLUENZA VIRUS VACCINE QUADRIVALENT TYPE A+B
     Indication: EXPOSURE DURING PREGNANCY
     Route: 064
     Dates: start: 20191007, end: 20191007
  6. SYMBICORT [Concomitant]
     Active Substance: BUDESONIDE\FORMOTEROL FUMARATE DIHYDRATE
     Indication: EXPOSURE DURING PREGNANCY
     Dosage: 320 [?G/D (BIS 160)] / 9 [?G/D (BIS 4.5)] 0?39.6. GESTATIONAL WEEK
     Route: 064
     Dates: start: 20190518, end: 20200221
  7. MIRTAZAPIN [Suspect]
     Active Substance: MIRTAZAPINE
     Indication: EXPOSURE DURING PREGNANCY
     Dosage: 1.87 [MG/D]?A 15 MG TABLET WAS DIVIDED SEVERAL TIMES BY THE PATIENT, 36?39.6. GESTATIONAL WEEK
     Route: 064

REACTIONS (7)
  - Atrial septal defect [Unknown]
  - Pregnancy [Unknown]
  - Drug withdrawal syndrome neonatal [Recovered/Resolved]
  - Bradycardia neonatal [Recovered/Resolved]
  - Hypotonia [Recovered/Resolved]
  - Infantile apnoea [Recovered/Resolved]
  - Respiratory disorder neonatal [Recovered/Resolved]

NARRATIVE: CASE EVENT DATE: 20200221
